FAERS Safety Report 7039086-7 (Version None)
Quarter: 2010Q4

REPORT INFORMATION
  Report Type: 
  Country: None (occurrence: None)
  Receive Date: 20101012
  Receipt Date: 20101006
  Transmission Date: 20110411
  Serious: Yes (Life-Threatening, Other)
  Sender: FDA-Public Use
  Company Number: JP-JNJFOC-20101002137

PATIENT
  Age: 51 Year
  Sex: Female

DRUGS (4)
  1. FINIBAX [Suspect]
     Indication: PHARYNGITIS
     Route: 041
  2. CERCINE [Suspect]
     Indication: DEPRESSION
     Route: 042
  3. FLUVOXAMINE MALEATE [Suspect]
     Indication: DEPRESSION
     Route: 048
  4. MEILAX [Suspect]
     Indication: DEPRESSION
     Route: 048

REACTIONS (2)
  - CONVULSION [None]
  - OFF LABEL USE [None]
